FAERS Safety Report 17026344 (Version 1)
Quarter: 2019Q4

REPORT INFORMATION
  Report Type: Report from Study
  Country: DE (occurrence: DE)
  Receive Date: 20191113
  Receipt Date: 20191113
  Transmission Date: 20200122
  Serious: Yes (Hospitalization)
  Sender: FDA-Public Use
  Company Number: DE-SA-2019SA031107

PATIENT
  Age: 19 Year
  Sex: Female
  Weight: 85 kg

DRUGS (5)
  1. ALEMTUZUMAB [Suspect]
     Active Substance: ALEMTUZUMAB
     Dosage: 12 MG
     Route: 041
     Dates: start: 20180918, end: 20180920
  2. ALEMTUZUMAB [Suspect]
     Active Substance: ALEMTUZUMAB
     Indication: MULTIPLE SCLEROSIS
     Dosage: 12 MG
     Route: 041
     Dates: start: 20170814, end: 20170818
  3. THIAMAZOL [Concomitant]
     Active Substance: METHIMAZOLE
     Dosage: 5 MG
     Route: 048
     Dates: start: 20180919, end: 20181201
  4. L-THYROXINE [LEVOTHYROXINE] [Concomitant]
     Active Substance: LEVOTHYROXINE
     Indication: BASEDOW^S DISEASE
     Dosage: 75 UG
     Route: 048
     Dates: start: 20190412
  5. THIAMAZOL [Concomitant]
     Active Substance: METHIMAZOLE
     Indication: BASEDOW^S DISEASE
     Dosage: 10 MG
     Route: 048
     Dates: start: 20180803, end: 20180918

REACTIONS (2)
  - Herpes zoster [Not Recovered/Not Resolved]
  - Multiple sclerosis relapse [Recovered/Resolved]

NARRATIVE: CASE EVENT DATE: 20190123
